FAERS Safety Report 7357686-1 (Version None)
Quarter: 2011Q1

REPORT INFORMATION
  Report Type: 
  Country: None (occurrence: None)
  Receive Date: 20110309
  Receipt Date: 20110303
  Transmission Date: 20110831
  Serious: Yes (Other)
  Sender: FDA-Public Use
  Company Number: GER/UKI/11/0017388

PATIENT
  Age: 26 Year
  Sex: Male
  Weight: 50.79 kg

DRUGS (2)
  1. FLUOXETINE [Suspect]
     Indication: OBSESSIVE-COMPULSIVE DISORDER
     Dosage: 60, 20 MG, 1 IN 1 D, ORAL
     Route: 048
     Dates: start: 20090201, end: 20091104
  2. FLUOXETINE [Suspect]
     Indication: OBSESSIVE-COMPULSIVE DISORDER
     Dosage: 60, 20 MG, 1 IN 1 D, ORAL
     Route: 048
     Dates: start: 20080601, end: 20090201

REACTIONS (4)
  - POLLAKIURIA [None]
  - ALOPECIA [None]
  - IRITIS [None]
  - MICTURITION URGENCY [None]
